FAERS Safety Report 15157287 (Version 3)
Quarter: 2019Q4

REPORT INFORMATION
  Report Type: Report from Study
  Country: US (occurrence: US)
  Receive Date: 20180718
  Receipt Date: 20191215
  Transmission Date: 20200122
  Serious: Yes (Hospitalization, Other)
  Sender: FDA-Public Use
  Company Number: US-TEVA-2017-US-837320

PATIENT
  Age: 60 Year
  Sex: Female

DRUGS (1)
  1. CINQAIR [Suspect]
     Active Substance: RESLIZUMAB
     Route: 042
     Dates: start: 20170815

REACTIONS (7)
  - Asthma [Recovering/Resolving]
  - Nephrolithiasis [Unknown]
  - Pain [Recovering/Resolving]
  - Peripheral swelling [Recovered/Resolved]
  - Back pain [Recovered/Resolved]
  - Urinary tract infection [Recovering/Resolving]
  - Dyspnoea [Recovering/Resolving]

NARRATIVE: CASE EVENT DATE: 20171129
